FAERS Safety Report 16797069 (Version 1)
Quarter: 2019Q3

REPORT INFORMATION
  Report Type: Spontaneous
  Country: IL (occurrence: IL)
  Receive Date: 20190911
  Receipt Date: 20190911
  Transmission Date: 20191005
  Serious: Yes (Hospitalization)
  Sender: FDA-Public Use
  Company Number: PHHY2019IL207220

PATIENT
  Age: 47 Year
  Sex: Female

DRUGS (7)
  1. PREDNISONE. [Suspect]
     Active Substance: PREDNISONE
     Dosage: 15 MG, (GRADUAL TAPERING OUT)
     Route: 065
  2. METHOTREXATE. [Suspect]
     Active Substance: METHOTREXATE
     Indication: CHORIORETINITIS
     Dosage: 17.5 MG, QW
     Route: 030
  3. PREDNISONE. [Suspect]
     Active Substance: PREDNISONE
     Indication: CHORIORETINITIS
     Dosage: 50 MG, (INTIALLY)
     Route: 065
  4. METHOTREXATE. [Suspect]
     Active Substance: METHOTREXATE
     Dosage: 20 MG, QW
     Route: 030
  5. METHOTREXATE. [Suspect]
     Active Substance: METHOTREXATE
     Indication: CHORIORETINITIS
     Dosage: 15 MG, UNK
     Route: 065
  6. PREDNISONE. [Suspect]
     Active Substance: PREDNISONE
     Dosage: 20 MG, (5 MG TAPERING EVERY TWO DAYS)
     Route: 065
  7. PREDNISONE. [Suspect]
     Active Substance: PREDNISONE
     Dosage: 5 MG, QD
     Route: 065

REACTIONS (11)
  - Visual impairment [Unknown]
  - Nausea [Unknown]
  - Vitritis [Unknown]
  - Retinal haemorrhage [Unknown]
  - Product use in unapproved indication [Unknown]
  - Weight increased [Unknown]
  - Reaction to excipient [Unknown]
  - Retinal vasculitis [Unknown]
  - Restlessness [Unknown]
  - Drug ineffective [Unknown]
  - Abdominal discomfort [Unknown]
